FAERS Safety Report 5726835-0 (Version None)
Quarter: 2008Q2

REPORT INFORMATION
  Report Type: 
  Country: None (occurrence: None)
  Receive Date: 20080502
  Receipt Date: 20080423
  Transmission Date: 20081010
  Serious: Yes (Hospitalization)
  Sender: FDA-Public Use
  Company Number: US-ABBOTT-08P-163-0437445-00

PATIENT
  Sex: Female
  Weight: 74.91 kg

DRUGS (13)
  1. DEPAKOTE ER [Suspect]
     Indication: ANALGESIA
     Route: 048
     Dates: start: 20080131, end: 20080207
  2. DEPAKOTE ER [Suspect]
     Indication: PAIN
  3. DEPAKOTE ER [Suspect]
     Indication: HERPES ZOSTER
  4. DEPAKENE [Suspect]
     Indication: ANALGESIA
     Route: 048
     Dates: start: 20080130, end: 20080131
  5. GABAPENTIN [Concomitant]
     Indication: PAIN MANAGEMENT
     Route: 048
  6. FUROSEMIDE [Concomitant]
     Indication: BLOOD PRESSURE MANAGEMENT
     Route: 048
  7. ALLOPURINOL [Concomitant]
     Indication: BLOOD PRESSURE MANAGEMENT
     Route: 048
  8. METOPROLOL TARTRATE [Concomitant]
     Indication: BLOOD PRESSURE MANAGEMENT
     Route: 048
  9. CETIRIZINE HCL [Concomitant]
     Indication: SEASONAL ALLERGY
     Route: 048
  10. POTASSIUM CHLORIDE [Concomitant]
     Indication: MINERAL SUPPLEMENTATION
     Route: 048
  11. LIDODERM [Concomitant]
     Indication: PAIN MANAGEMENT
     Route: 061
  12. ANCOVERT [Concomitant]
     Indication: HERPES ZOSTER
     Route: 048
  13. PANTOPRAZOLE SODIUM [Concomitant]
     Indication: GASTRIC DISORDER
     Route: 048

REACTIONS (6)
  - ASTHENIA [None]
  - CONFUSIONAL STATE [None]
  - FALL [None]
  - GAIT DISTURBANCE [None]
  - LETHARGY [None]
  - PSYCHOMOTOR SKILLS IMPAIRED [None]
